FAERS Safety Report 22286982 (Version 2)
Quarter: 2023Q2

REPORT INFORMATION
  Report Type: Spontaneous
  Country: US (occurrence: US)
  Receive Date: 20230505
  Receipt Date: 20230614
  Transmission Date: 20230722
  Serious: No
  Sender: FDA-Public Use
  Company Number: None

PATIENT

DRUGS (1)
  1. HYDROXYUREA [Suspect]
     Active Substance: HYDROXYUREA
     Indication: Platelet count increased
     Route: 065

REACTIONS (5)
  - Parosmia [Not Recovered/Not Resolved]
  - Constipation [Unknown]
  - Pruritus [Unknown]
  - Product odour abnormal [Not Recovered/Not Resolved]
  - Product use in unapproved indication [Unknown]
